FAERS Safety Report 10423807 (Version 2)
Quarter: 2014Q4

REPORT INFORMATION
  Report Type: Spontaneous
  Country: DE (occurrence: DE)
  Receive Date: 20140902
  Receipt Date: 20141014
  Transmission Date: 20150528
  Serious: No
  Sender: FDA-Public Use
  Company Number: DE-SA-2014SA116803

PATIENT
  Age: 30 Year
  Sex: Female

DRUGS (2)
  1. ARAVA [Suspect]
     Active Substance: LEFLUNOMIDE
     Indication: ACCIDENTAL EXPOSURE TO PRODUCT
     Route: 065
     Dates: start: 2014
  2. ARAVA [Suspect]
     Active Substance: LEFLUNOMIDE
     Indication: ACCIDENTAL EXPOSURE TO PRODUCT
     Route: 065
     Dates: end: 20140818

REACTIONS (2)
  - Diarrhoea [Unknown]
  - Exposure during pregnancy [Unknown]
